FAERS Safety Report 15575922 (Version 14)
Quarter: 2023Q1

REPORT INFORMATION
  Report Type: Report from Study
  Country: CO (occurrence: CO)
  Receive Date: 20181101
  Receipt Date: 20230323
  Transmission Date: 20230418
  Serious: Yes (Hospitalization, Other)
  Sender: FDA-Public Use
  Company Number: CO-ASTELLAS-2018US042555

PATIENT
  Sex: Female
  Weight: 57 kg

DRUGS (4)
  1. TACROLIMUS [Suspect]
     Active Substance: TACROLIMUS
     Indication: Renal transplant
     Dosage: 3 MG (3 CAPSULES OF 1 MG), ONCE DAILY
     Route: 048
     Dates: start: 20141227
  2. TACROLIMUS [Suspect]
     Active Substance: TACROLIMUS
     Route: 048
     Dates: start: 202208
  3. EVEROLIMUS [Concomitant]
     Active Substance: EVEROLIMUS
     Indication: Transplant
     Route: 048
     Dates: start: 20141227
  4. PREDNISOLONE [Concomitant]
     Active Substance: PREDNISOLONE
     Indication: Product used for unknown indication
     Dosage: UNK UNK, UNKNOWN FREQ.
     Route: 065

REACTIONS (20)
  - Abdominal hernia [Recovering/Resolving]
  - Limb injury [Recovered/Resolved]
  - Nasal injury [Recovering/Resolving]
  - Sneezing [Unknown]
  - Pain in jaw [Recovered/Resolved]
  - Chest pain [Recovered/Resolved]
  - Furuncle [Unknown]
  - Skin cancer [Not Recovered/Not Resolved]
  - Recurrent cancer [Not Recovered/Not Resolved]
  - Viral infection [Recovered/Resolved]
  - Blood creatinine increased [Recovering/Resolving]
  - Tuberculosis [Recovered/Resolved]
  - Influenza [Recovering/Resolving]
  - Malaise [Recovering/Resolving]
  - Gastritis [Unknown]
  - Blood creatinine increased [Recovered/Resolved]
  - Nasal injury [Recovered/Resolved]
  - Skin cancer [Recovering/Resolving]
  - Post procedural discomfort [Unknown]
  - Procedural pain [Unknown]

NARRATIVE: CASE EVENT DATE: 20150101
